FAERS Safety Report 7437174-4 (Version None)
Quarter: 2011Q2

REPORT INFORMATION
  Report Type: 
  Country: None (occurrence: None)
  Receive Date: 20110426
  Receipt Date: 20110408
  Transmission Date: 20111010
  Serious: Yes (Other)
  Sender: FDA-Public Use
  Company Number: BE-PFIZER INC-BE-WYE-G06150010

PATIENT
  Sex: Male
  Weight: 71 kg

DRUGS (5)
  1. ELVORINE [Suspect]
  2. NOVABAN [Suspect]
  3. ATROPINE [Suspect]
  4. CAMPTOSAR [Suspect]
     Indication: COLORECTAL CANCER
     Dosage: 180 UG/M2, 1X/DAY
     Route: 042
     Dates: start: 20100331, end: 20100331
  5. INITARD [Concomitant]
     Route: 058

REACTIONS (3)
  - ANGIOEDEMA [None]
  - HYPERSENSITIVITY [None]
  - THROAT TIGHTNESS [None]
